FAERS Safety Report 7900627-6 (Version None)
Quarter: 2011Q4

REPORT INFORMATION
  Report Type: 
  Country: None (occurrence: None)
  Receive Date: 20111104
  Receipt Date: 20111019
  Transmission Date: 20120403
  Serious: Yes (Hospitalization)
  Sender: FDA-Public Use
  Company Number: VALP20110011

PATIENT
  Age: 22 Year
  Sex: Male

DRUGS (1)
  1. VALPROIC ACID [Suspect]
     Indication: PRODUCT USED FOR UNKNOWN INDICATION
     Dosage: 50 G, UNK, ORAL
     Route: 048

REACTIONS (7)
  - DEPRESSED LEVEL OF CONSCIOUSNESS [None]
  - PUPILS UNEQUAL [None]
  - INTENTIONAL OVERDOSE [None]
  - TOXICITY TO VARIOUS AGENTS [None]
  - HYPERAMMONAEMIA [None]
  - HAEMODIALYSIS [None]
  - BRAIN OEDEMA [None]
